FAERS Safety Report 11317962 (Version 1)
Quarter: 2015Q3

REPORT INFORMATION
  Report Type: Spontaneous
  Country: US (occurrence: US)
  Receive Date: 20150728
  Receipt Date: 20150728
  Transmission Date: 20151125
  Serious: Yes (Other)
  Sender: FDA-Public Use
  Company Number: US-ELI_LILLY_AND_COMPANY-US201507006215

PATIENT
  Sex: Male
  Weight: 118 kg

DRUGS (3)
  1. CYMBALTA [Suspect]
     Active Substance: DULOXETINE HYDROCHLORIDE
     Indication: NEUROPATHY PERIPHERAL
     Dosage: UNK UNK, BID
     Route: 048
  2. NEUROTIN                           /00949202/ [Concomitant]
     Active Substance: ACETYLCARNITINE HYDROCHLORIDE
     Indication: NEUROPATHY PERIPHERAL
     Dosage: 300 MG, QD
     Route: 065
  3. LYRICA [Suspect]
     Active Substance: PREGABALIN
     Indication: NEUROPATHY PERIPHERAL
     Dosage: UNK, BID
     Route: 048

REACTIONS (4)
  - Tremor [Unknown]
  - Neuropathy peripheral [Not Recovered/Not Resolved]
  - Malaise [Recovered/Resolved]
  - Off label use [Unknown]
